FAERS Safety Report 5530017-5 (Version None)
Quarter: 2007Q4

REPORT INFORMATION
  Report Type: 
  Country: None (occurrence: None)
  Receive Date: 20071127
  Receipt Date: 20071120
  Transmission Date: 20080405
  Serious: Yes (Death, Hospitalization)
  Sender: FDA-Public Use
  Company Number: 163-20785-07100487

PATIENT
  Age: 73 Year
  Sex: Female

DRUGS (3)
  1. THALOMID [Suspect]
     Indication: MULTIPLE MYELOMA
     Dosage: 200 MG, ORAL
     Route: 048
     Dates: start: 20070724, end: 20070101
  2. DEXAMETHASONE TAB [Concomitant]
  3. DIPYRIDAMOLE [Concomitant]

REACTIONS (19)
  - ANAEMIA [None]
  - ASTHENIA [None]
  - BLOOD CALCIUM INCREASED [None]
  - BLOOD GLUCOSE INCREASED [None]
  - BLOOD SODIUM DECREASED [None]
  - CONFUSIONAL STATE [None]
  - COUGH [None]
  - DISEASE PROGRESSION [None]
  - DRUG TOXICITY [None]
  - DYSPNOEA [None]
  - FALL [None]
  - FATIGUE [None]
  - GENERAL PHYSICAL HEALTH DETERIORATION [None]
  - MULTIPLE MYELOMA [None]
  - PAIN [None]
  - PNEUMONIA [None]
  - PROTEIN TOTAL INCREASED [None]
  - SUBDURAL HAEMATOMA [None]
  - THROMBOCYTOPENIA [None]
